FAERS Safety Report 6176278-3 (Version None)
Quarter: 2009Q2

REPORT INFORMATION
  Report Type: 
  Country: None (occurrence: None)
  Receive Date: 20090501
  Receipt Date: 20090422
  Transmission Date: 20091009
  Serious: Yes (Hospitalization)
  Sender: FDA-Public Use
  Company Number: B0572388A

PATIENT
  Sex: Male

DRUGS (5)
  1. AMOXICILLIN [Suspect]
     Indication: DRUG USE FOR UNKNOWN INDICATION
     Route: 048
     Dates: start: 20090219, end: 20090220
  2. AIROMIR [Suspect]
     Indication: DRUG USE FOR UNKNOWN INDICATION
     Dosage: 1PUFF THREE TIMES PER DAY
     Route: 055
     Dates: start: 20090219, end: 20090219
  3. CELESTENE [Suspect]
     Indication: DRUG USE FOR UNKNOWN INDICATION
     Dosage: 2MG TWICE PER DAY
     Route: 048
     Dates: start: 20090219, end: 20090219
  4. SYMBICORT [Suspect]
     Indication: DRUG USE FOR UNKNOWN INDICATION
     Dosage: 2PUFF THREE TIMES PER DAY
     Route: 055
     Dates: end: 20090219
  5. BIOCALYPTOL-PHOLCODINE [Suspect]
     Indication: DRUG USE FOR UNKNOWN INDICATION
     Route: 048
     Dates: start: 20090219, end: 20090220

REACTIONS (14)
  - ASTHMATIC CRISIS [None]
  - BLOOD KETONE BODY [None]
  - BLOOD PHOSPHORUS DECREASED [None]
  - DIABETES MELLITUS [None]
  - DYSPNOEA [None]
  - FATIGUE [None]
  - GAIT DISTURBANCE [None]
  - GLYCOSURIA [None]
  - HYPERGLYCAEMIA [None]
  - HYPOKALAEMIA [None]
  - MYALGIA [None]
  - PAIN IN EXTREMITY [None]
  - PAINFUL RESPIRATION [None]
  - VOMITING [None]
